FAERS Safety Report 11209767 (Version 1)
Quarter: 2015Q2

REPORT INFORMATION
  Report Type: Spontaneous
  Country: KR (occurrence: KR)
  Receive Date: 20150622
  Receipt Date: 20150622
  Transmission Date: 20150821
  Serious: Yes (Other)
  Sender: FDA-Public Use
  Company Number: PHHY2015KR072652

PATIENT
  Age: 20 Year
  Sex: Female

DRUGS (1)
  1. OFLOXACIN 1A PHARMA [Suspect]
     Active Substance: OFLOXACIN
     Indication: RHINITIS ALLERGIC
     Route: 065

REACTIONS (2)
  - Anaphylactic reaction [Unknown]
  - Urticaria [Unknown]
